FAERS Safety Report 9313635 (Version 1)
Quarter: 2013Q2

REPORT INFORMATION
  Report Type: Spontaneous
  Country: US (occurrence: US)
  Receive Date: 20130528
  Receipt Date: 20130528
  Transmission Date: 20140414
  Serious: Yes (Death)
  Sender: FDA-Public Use
  Company Number: US-ELI_LILLY_AND_COMPANY-US201302001400

PATIENT
  Age: 40 Year
  Sex: Female

DRUGS (4)
  1. CEPHALEXIN HYDROCHLORIDE [Suspect]
  2. OXYCODONE [Concomitant]
  3. QUETIAPINE [Concomitant]
  4. PAROXETINE [Concomitant]

REACTIONS (2)
  - Death [Fatal]
  - Cardio-respiratory arrest [Fatal]
